FAERS Safety Report 25364833 (Version 1)
Quarter: 2025Q2

REPORT INFORMATION
  Report Type: Spontaneous
  Country: US (occurrence: US)
  Receive Date: 20250527
  Receipt Date: 20250527
  Transmission Date: 20250716
  Serious: No
  Sender: INSUD PHARMA
  Company Number: US-INSUD PHARMA-2502US01325

PATIENT

DRUGS (1)
  1. TESTOSTERONE CYPIONATE [Suspect]
     Active Substance: TESTOSTERONE CYPIONATE
     Indication: Testicular failure
     Dosage: 200 MILLIGRAM, ONCE WEEKLY
     Route: 030
     Dates: start: 20250115, end: 20250207

REACTIONS (9)
  - Blood testosterone decreased [Recovered/Resolved]
  - Depression [Recovered/Resolved]
  - Decreased interest [Recovered/Resolved]
  - Feeling abnormal [Recovered/Resolved]
  - Fatigue [Recovered/Resolved]
  - Unevaluable event [Recovered/Resolved]
  - Asthenia [Recovered/Resolved]
  - Product prescribing issue [Unknown]
  - Product substitution issue [Unknown]

NARRATIVE: CASE EVENT DATE: 20250101
